FAERS Safety Report 7815683-3 (Version None)
Quarter: 2011Q4

REPORT INFORMATION
  Report Type: 
  Country: None (occurrence: None)
  Receive Date: 20111014
  Receipt Date: 20111007
  Transmission Date: 20120403
  Serious: Yes (Other)
  Sender: FDA-Public Use
  Company Number: PHHY2011JP90100

PATIENT
  Age: 54 Year
  Sex: Female

DRUGS (4)
  1. FLUOROURACIL [Suspect]
     Dosage: UNK
  2. LEUCOVORIN CALCIUM [Suspect]
     Dosage: UNK
  3. OXALIPLATIN [Suspect]
     Dosage: UNK
  4. BEVACIZUMAB [Suspect]
     Dosage: UNK

REACTIONS (4)
  - BLOOD BILIRUBIN UNCONJUGATED INCREASED [None]
  - HAEMOLYSIS [None]
  - NEUROPATHY PERIPHERAL [None]
  - BLOOD IRON INCREASED [None]
